FAERS Safety Report 5236035-9 (Version None)
Quarter: 2007Q1

REPORT INFORMATION
  Report Type: 
  Country: None (occurrence: None)
  Receive Date: 20061208
  Receipt Date: 20060720
  Transmission Date: 20070707
  Serious: Yes (Other)
  Sender: FDA-Public Use
  Company Number: 2006UW10746

PATIENT
  Age: 69 Year
  Sex: Female

DRUGS (4)
  1. CRESTOR [Suspect]
     Indication: BLOOD CHOLESTEROL INCREASED
     Dosage: 2.5 MG QD PO
     Route: 048
     Dates: start: 20060402
  2. CRESTOR [Suspect]
     Indication: LIPIDS INCREASED
     Dosage: 2.5 MG QD PO
     Route: 048
     Dates: start: 20060402
  3. HYDRALAZINE HCL [Concomitant]
  4. ZESTORETIC [Concomitant]

REACTIONS (3)
  - BALANCE DISORDER [None]
  - MUSCULAR WEAKNESS [None]
  - PAIN [None]
